FAERS Safety Report 24293519 (Version 1)
Quarter: 2024Q3

REPORT INFORMATION
  Report Type: Spontaneous
  Country: US (occurrence: None)
  Receive Date: 20240906
  Receipt Date: 20240906
  Transmission Date: 20241017
  Serious: No
  Sender: DOMPE FARMACEUTICI
  Company Number: US-FARMAPROD-202308-202401-0278

PATIENT
  Sex: Male

DRUGS (19)
  1. OXERVATE [Suspect]
     Active Substance: CENEGERMIN-BKBJ
     Indication: Neurotrophic keratopathy
     Route: 047
     Dates: start: 20240103
  2. OXERVATE [Suspect]
     Active Substance: CENEGERMIN-BKBJ
  3. BENADRYL [Concomitant]
     Active Substance: DIPHENHYDRAMINE HYDROCHLORIDE
  4. LUBRICANT EYE (MINERAL OIL\PETROLATUM) [Concomitant]
     Active Substance: MINERAL OIL\PETROLATUM
     Dosage: 42.5-57.3%
  5. RETAINE PM [Concomitant]
     Active Substance: MINERAL OIL\PETROLATUM
     Dosage: 20%-80%
  6. SOOTHE XP [Concomitant]
     Active Substance: LIGHT MINERAL OIL\MINERAL OIL
     Dosage: 1%-4.5%
  7. ALKA-SELTZER [Concomitant]
     Active Substance: ANHYDROUS CITRIC ACID\ASPIRIN\SODIUM BICARBONATE
     Dosage: 344-1050MG
  8. AFRIN [Concomitant]
     Active Substance: OXYMETAZOLINE
  9. ASPIRIN [Concomitant]
     Active Substance: ASPIRIN
  10. HERBALS\SAW PALMETTO [Concomitant]
     Active Substance: HERBALS\SAW PALMETTO
  11. CRANBERRY [Concomitant]
     Active Substance: CRANBERRY
  12. MULTIVITAMIN 50 PLUS [Concomitant]
  13. VITAMIN E [Concomitant]
     Active Substance: .ALPHA.-TOCOPHEROL
  14. RHOPRESSA [Concomitant]
     Active Substance: NETARSUDIL MESYLATE
  15. BRIMONIDINE/DORZOLAMIDE [Concomitant]
  16. EZETIMIBE\ROSUVASTATIN [Concomitant]
     Active Substance: EZETIMIBE\ROSUVASTATIN
  17. CELEBREX [Concomitant]
     Active Substance: CELECOXIB
  18. LISINOPRIL [Concomitant]
     Active Substance: LISINOPRIL
  19. ESOMEPRAZOLE MAGNESIUM [Concomitant]
     Active Substance: ESOMEPRAZOLE MAGNESIUM

REACTIONS (5)
  - Eyelid pain [Unknown]
  - Eyelid irritation [Unknown]
  - Eye swelling [Unknown]
  - Retinal disorder [Unknown]
  - Therapy interrupted [Unknown]
